FAERS Safety Report 25395267 (Version 1)
Quarter: 2025Q2

REPORT INFORMATION
  Report Type: Spontaneous
  Country: US (occurrence: US)
  Receive Date: 20250604
  Receipt Date: 20250604
  Transmission Date: 20250716
  Serious: No
  Sender: COHERUS
  Company Number: US-COHERUS BIOSCIENCES, INC-2025-COH-US000477

PATIENT

DRUGS (1)
  1. UDENYCA [Suspect]
     Active Substance: PEGFILGRASTIM-CBQV
     Indication: Product used for unknown indication
     Route: 058

REACTIONS (3)
  - Device malfunction [Unknown]
  - Device failure [Unknown]
  - No adverse event [Unknown]
